FAERS Safety Report 16988913 (Version 2)
Quarter: 2020Q1

REPORT INFORMATION
  Report Type: Spontaneous
  Country: US (occurrence: US)
  Receive Date: 20191104
  Receipt Date: 20200310
  Transmission Date: 20200409
  Serious: No
  Sender: FDA-Public Use
  Company Number: US-FARMAPROD-201909-1483

PATIENT
  Sex: Female

DRUGS (9)
  1. COMBIVENT RESPIMAT [Concomitant]
     Active Substance: ALBUTEROL SULFATE\IPRATROPIUM BROMIDE
  2. LISINOPRIL. [Concomitant]
     Active Substance: LISINOPRIL
  3. AZOPT [Concomitant]
     Active Substance: BRINZOLAMIDE
  4. BREO ELLIPTA [Concomitant]
     Active Substance: FLUTICASONE FUROATE\VILANTEROL TRIFENATATE
     Dosage: DOSAGE: 200-25 MCG BLST W/DEV
  5. OXERVATE [Suspect]
     Active Substance: CENEGERMIN-BKBJ
     Indication: NEUROTROPHIC KERATOPATHY
     Route: 047
  6. ALBUTEROL SULFATE. [Concomitant]
     Active Substance: ALBUTEROL SULFATE
  7. CALCIUM [Concomitant]
     Active Substance: CALCIUM
     Dosage: STRENGTH: 1250 MG, EQUIVALENT TO 500 MG CALCIUM
     Route: 048
  8. MULTIVITAMINS [Concomitant]
     Active Substance: VITAMINS
     Route: 048
  9. LUMIGAN [Concomitant]
     Active Substance: BIMATOPROST

REACTIONS (2)
  - Product dose omission [Unknown]
  - Eye pruritus [Unknown]
